FAERS Safety Report 16169922 (Version 1)
Quarter: 2019Q2

REPORT INFORMATION
  Report Type: Report from Study
  Country: GR (occurrence: GR)
  Receive Date: 20190408
  Receipt Date: 20190408
  Transmission Date: 20190711
  Serious: Yes (Death)
  Sender: FDA-Public Use
  Company Number: GR-ROCHE-2295078

PATIENT
  Age: 70 Year
  Sex: Female
  Weight: 100 kg

DRUGS (1)
  1. ESBRIET [Suspect]
     Active Substance: PIRFENIDONE
     Indication: IDIOPATHIC PULMONARY FIBROSIS
     Route: 065
     Dates: start: 2015, end: 201802

REACTIONS (1)
  - Infarction [Fatal]

NARRATIVE: CASE EVENT DATE: 201802
